FAERS Safety Report 13930187 (Version 1)
Quarter: 2017Q3

REPORT INFORMATION
  Report Type: Spontaneous
  Country: DE (occurrence: DE)
  Receive Date: 20170901
  Receipt Date: 20170901
  Transmission Date: 20171127
  Serious: Yes (Other)
  Sender: FDA-Public Use
  Company Number: DE-PFIZER INC-2017370608

PATIENT
  Sex: Male

DRUGS (2)
  1. LANTAREL [Suspect]
     Active Substance: METHOTREXATE SODIUM
     Indication: BACK PAIN
     Dosage: UNK
     Dates: start: 2017
  2. LANTAREL [Suspect]
     Active Substance: METHOTREXATE SODIUM
     Indication: BACK DISORDER

REACTIONS (1)
  - Spinal compression fracture [Unknown]
